FAERS Safety Report 4677976-0 (Version None)
Quarter: 2005Q2

REPORT INFORMATION
  Report Type: 
  Country: None (occurrence: None)
  Receive Date: 20050531
  Receipt Date: 20050421
  Transmission Date: 20051028
  Serious: No
  Sender: FDA-Public Use
  Company Number: 2005AP02399

PATIENT
  Age: 26927 Day
  Sex: Female

DRUGS (19)
  1. OMEPRAZOLE [Suspect]
     Indication: GASTRIC ULCER
     Route: 048
     Dates: start: 20050223, end: 20050406
  2. THEO-DUR [Concomitant]
     Dates: start: 19900215
  3. PURSENNID [Concomitant]
     Dates: start: 19990830
  4. MAGNESIUM OXIDE [Concomitant]
     Dates: start: 19990830
  5. MERISLON [Concomitant]
     Dates: start: 20010731
  6. ALUMINUM HYDROXIDE AND MAGNESIUM TRISILICATE [Concomitant]
     Dates: start: 20020731
  7. BENZALIN [Concomitant]
     Dates: start: 20040616
  8. YODEL [Concomitant]
     Dates: start: 20040616
  9. MUCOSTA [Concomitant]
     Dates: start: 20040616
  10. FLUITRAN [Concomitant]
     Dates: start: 20041208
  11. TENORMIN [Concomitant]
     Route: 048
     Dates: start: 20041222
  12. CALBLOCK [Concomitant]
     Dates: start: 20041222
  13. ALOTEC [Concomitant]
     Dates: start: 20050107
  14. PL [Concomitant]
     Indication: NASOPHARYNGITIS
     Dates: start: 20050309, end: 20050313
  15. CRAVIT [Concomitant]
     Indication: NASOPHARYNGITIS
     Dates: start: 20050309, end: 20050313
  16. HUSTAZOL [Concomitant]
     Indication: NASOPHARYNGITIS
     Dates: start: 20050309, end: 20050313
  17. EBASTEL [Concomitant]
     Indication: NASOPHARYNGITIS
     Dates: start: 20050309, end: 20050313
  18. BRONICA [Concomitant]
     Dates: start: 20040602
  19. OLMETEC [Concomitant]
     Dates: start: 20040622

REACTIONS (1)
  - RHABDOMYOLYSIS [None]
